FAERS Safety Report 8869180 (Version 1)
Quarter: 2012Q4

REPORT INFORMATION
  Report Type: 
  Country: US (occurrence: US)
  Receive Date: 20121023
  Receipt Date: 20121023
  Transmission Date: 20130627
  Serious: No
  Sender: FDA-Public Use
  Company Number: US-AMGEN-USASP2012053703

PATIENT
  Age: 86 Year
  Sex: Female

DRUGS (8)
  1. ENBREL [Suspect]
     Indication: RHEUMATOID ARTHRITIS
     Dosage: 50 mg, Once every ten days
     Route: 058
  2. FOSAMAX [Concomitant]
     Dosage: 70 mg, UNK
  3. NORVASC [Concomitant]
     Dosage: 10 mg, UNK
  4. FEMARA [Concomitant]
     Dosage: 2.5 mg, UNK
  5. TRIPLE FLEX [Concomitant]
  6. MULTIVITAMIN                       /00097801/ [Concomitant]
  7. MINERAL [Concomitant]
  8. BABY ASPIRIN [Concomitant]
     Dosage: 81 mg, UNK

REACTIONS (2)
  - Arthropod sting [Unknown]
  - Infection [Unknown]
